FAERS Safety Report 24000943 (Version 1)
Quarter: 2024Q2

REPORT INFORMATION
  Report Type: Spontaneous
  Country: CN (occurrence: CN)
  Receive Date: 20240621
  Receipt Date: 20240621
  Transmission Date: 20240715
  Serious: Yes (Other)
  Sender: FDA-Public Use
  Company Number: CN-BoehringerIngelheim-2024-BI-035358

PATIENT
  Age: 7 Year
  Sex: Male
  Weight: 22.5 kg

DRUGS (3)
  1. ATROVENT [Suspect]
     Active Substance: IPRATROPIUM BROMIDE
     Indication: Bronchitis
     Route: 055
     Dates: start: 20240616, end: 20240616
  2. PULMICORT RESPULES [Suspect]
     Active Substance: BUDESONIDE
     Indication: Bronchitis
     Dosage: FORM OF ADM: SUSPENSION
     Route: 055
     Dates: start: 20240616, end: 20240616
  3. ALBUTEROL SULFATE [Suspect]
     Active Substance: ALBUTEROL SULFATE
     Indication: Bronchitis
     Route: 055
     Dates: start: 20240616, end: 20240616

REACTIONS (4)
  - Paralysis [Recovering/Resolving]
  - Vomiting [Recovering/Resolving]
  - Nausea [Recovering/Resolving]
  - Decreased appetite [Recovering/Resolving]

NARRATIVE: CASE EVENT DATE: 20240616
